FAERS Safety Report 9145149 (Version 1)
Quarter: 2013Q1

REPORT INFORMATION
  Report Type: Spontaneous
  Country: US (occurrence: US)
  Receive Date: 20130307
  Receipt Date: 20130307
  Transmission Date: 20140127
  Serious: No
  Sender: FDA-Public Use
  Company Number: US-BIOGENIDEC-2013BI020330

PATIENT
  Age: 46 Year
  Sex: Female

DRUGS (2)
  1. TYSABRI [Suspect]
     Indication: MULTIPLE SCLEROSIS
     Route: 042
     Dates: start: 20110919
  2. AVONEX [Concomitant]
     Indication: MULTIPLE SCLEROSIS
     Route: 030
     Dates: start: 20090602

REACTIONS (5)
  - Fibromyalgia [Recovered/Resolved]
  - Anaemia [Recovered/Resolved]
  - Iritis [Recovered/Resolved]
  - Multiple sclerosis relapse [Recovered/Resolved]
  - Bronchitis [Recovered/Resolved]
